FAERS Safety Report 9147348 (Version 3)
Quarter: 2013Q2

REPORT INFORMATION
  Report Type: Spontaneous
  Country: US (occurrence: US)
  Receive Date: 20130307
  Receipt Date: 20130620
  Transmission Date: 20140414
  Serious: Yes (Hospitalization)
  Sender: FDA-Public Use
  Company Number: US-GLAXOSMITHKLINE-A1014405A

PATIENT
  Age: 73 Year
  Sex: Male

DRUGS (5)
  1. ADVAIR [Suspect]
     Indication: CHRONIC OBSTRUCTIVE PULMONARY DISEASE
     Dosage: 1PUFF TWICE PER DAY
     Route: 055
     Dates: start: 201204, end: 20121219
  2. SPIRIVA [Concomitant]
  3. VENTOLIN [Concomitant]
  4. RANITIDINE [Concomitant]
  5. HCTZ [Concomitant]

REACTIONS (6)
  - Respiratory tract infection bacterial [Recovered/Resolved]
  - Oral candidiasis [Recovered/Resolved]
  - Weight decreased [Recovered/Resolved]
  - Asthenia [Recovered/Resolved]
  - Pneumonia [Unknown]
  - Empyema [Unknown]
